FAERS Safety Report 16753744 (Version 1)
Quarter: 2019Q3

REPORT INFORMATION
  Report Type: Spontaneous
  Country: US (occurrence: US)
  Receive Date: 20190710
  Receipt Date: 20190710
  Transmission Date: 20191005
  Serious: No
  Sender: FDA-Public Use
  Company Number: None

PATIENT
  Age: 63 Year
  Sex: Female

DRUGS (1)
  1. TAFINLAR [Suspect]
     Active Substance: DABRAFENIB MESYLATE
     Route: 048
     Dates: start: 20170922

REACTIONS (5)
  - Skin fissures [None]
  - Pruritus [None]
  - Rash [None]
  - Dry skin [None]
  - Rash erythematous [None]

NARRATIVE: CASE EVENT DATE: 20190710
